FAERS Safety Report 13096398 (Version 3)
Quarter: 2018Q2

REPORT INFORMATION
  Report Type: Report from Study
  Country: US (occurrence: US)
  Receive Date: 20170109
  Receipt Date: 20180605
  Transmission Date: 20180711
  Serious: Yes (Death, Hospitalization, Other)
  Sender: FDA-Public Use
  Company Number: PHEH2017US000749

PATIENT
  Age: 73 Year
  Sex: Female

DRUGS (1)
  1. TASIGNA [Suspect]
     Active Substance: NILOTINIB
     Indication: PRODUCT USED FOR UNKNOWN INDICATION
     Dosage: 150 MG, UNK
     Route: 065

REACTIONS (5)
  - Chronic myeloid leukaemia [Unknown]
  - Interstitial lung disease [Fatal]
  - Haemothorax [Unknown]
  - Scleroderma [Fatal]
  - Concomitant disease progression [Unknown]

NARRATIVE: CASE EVENT DATE: 20161209
